FAERS Safety Report 8501650-3 (Version None)
Quarter: 2012Q3

REPORT INFORMATION
  Report Type: 
  Country: None (occurrence: None)
  Receive Date: 20120711
  Receipt Date: 20120702
  Transmission Date: 20120928
  Serious: Yes (Other)
  Sender: FDA-Public Use
  Company Number: AT-BIOGENIDEC-2012BI021436

PATIENT
  Sex: Female

DRUGS (3)
  1. TYSABRI [Suspect]
     Indication: RELAPSING-REMITTING MULTIPLE SCLEROSIS
     Route: 042
     Dates: start: 20080801, end: 20091022
  2. GABAPENTIN [Concomitant]
     Indication: MUSCLE SPASTICITY
     Route: 048
  3. DRONABINOL [Concomitant]
     Indication: MUSCLE SPASTICITY
     Route: 048

REACTIONS (1)
  - BREECH PRESENTATION [None]
